FAERS Safety Report 10071595 (Version 1)
Quarter: 2014Q2

REPORT INFORMATION
  Report Type: Report from Study
  Country: CH (occurrence: CH)
  Receive Date: 20140410
  Receipt Date: 20140410
  Transmission Date: 20141212
  Serious: Yes (Life-Threatening, Hospitalization)
  Sender: FDA-Public Use
  Company Number: CH-MYLANLABS-2014S1007377

PATIENT
  Age: 39 Year
  Sex: Male

DRUGS (1)
  1. METHADONE [Suspect]
     Route: 042

REACTIONS (3)
  - Coma [Recovering/Resolving]
  - Respiratory failure [Recovered/Resolved]
  - Incorrect route of drug administration [Recovering/Resolving]
